FAERS Safety Report 7650879-5 (Version None)
Quarter: 2011Q3

REPORT INFORMATION
  Report Type: 
  Country: None (occurrence: None)
  Receive Date: 20110802
  Receipt Date: 20110719
  Transmission Date: 20111222
  Serious: Yes (Life-Threatening, Other)
  Sender: FDA-Public Use
  Company Number: US-AMGEN-USASP2011036792

PATIENT
  Sex: Female

DRUGS (3)
  1. PROLIA [Suspect]
     Indication: OSTEOPOROSIS
     Dosage: 60 MG, UNK
     Dates: start: 20100826, end: 20101231
  2. PREDNISONE [Concomitant]
  3. METHOTREXATE [Concomitant]

REACTIONS (14)
  - PAIN IN JAW [None]
  - PRURITUS [None]
  - DRY SKIN [None]
  - MUSCLE SPASMS [None]
  - HAIR DISORDER [None]
  - CONSTIPATION [None]
  - DYSPNOEA [None]
  - BLOOD CHOLESTEROL INCREASED [None]
  - ERUCTATION [None]
  - CHILLS [None]
  - BACK PAIN [None]
  - JAW DISORDER [None]
  - DYSURIA [None]
  - MYALGIA [None]
